FAERS Safety Report 4775069-5 (Version None)
Quarter: 2005Q3

REPORT INFORMATION
  Report Type: 
  Country: None (occurrence: None)
  Receive Date: 20050920
  Receipt Date: 20030604
  Transmission Date: 20060218
  Serious: No
  Sender: FDA-Public Use
  Company Number: ENT 2004-0127

PATIENT
  Age: 64 Year
  Sex: Male

DRUGS (3)
  1. COMTESS (ENTACAPONE) [Suspect]
     Indication: PARKINSON'S DISEASE
     Dosage: 800, ORAL
     Route: 048
     Dates: start: 20030520
  2. LEVODOPA [Concomitant]
  3. LEVODOPA RETARD [Concomitant]

REACTIONS (1)
  - ABSCESS LIMB [None]
